FAERS Safety Report 8805313 (Version 2)
Quarter: 2015Q3

REPORT INFORMATION
  Report Type: Report from Study
  Country: US (occurrence: US)
  Receive Date: 20120924
  Receipt Date: 20150701
  Transmission Date: 20151125
  Serious: Yes (Death, Other)
  Sender: FDA-Public Use
  Company Number: US-ROCHE-1127593

PATIENT
  Age: 47 Year
  Sex: Female

DRUGS (20)
  1. KYTRIL [Concomitant]
     Active Substance: GRANISETRON HYDROCHLORIDE
     Route: 065
  2. FERRITIN [Concomitant]
     Active Substance: FERRITIN
  3. TAGAMET [Concomitant]
     Active Substance: CIMETIDINE
     Route: 065
  4. BENADRYL [Concomitant]
     Active Substance: DIPHENHYDRAMINE HYDROCHLORIDE
     Route: 065
  5. CARBOPLATIN. [Concomitant]
     Active Substance: CARBOPLATIN
     Route: 065
  6. ALOXI [Concomitant]
     Active Substance: PALONOSETRON HYDROCHLORIDE
     Route: 065
  7. CARBOPLATIN. [Concomitant]
     Active Substance: CARBOPLATIN
     Route: 042
  8. DECADRON [Concomitant]
     Active Substance: DEXAMETHASONE
     Route: 065
  9. HEPARIN [Concomitant]
     Active Substance: HEPARIN SODIUM
  10. GEMZAR [Concomitant]
     Active Substance: GEMCITABINE HYDROCHLORIDE
     Route: 065
  11. ARANESP [Concomitant]
     Active Substance: DARBEPOETIN ALFA
     Route: 065
  12. SOLU-CORTEF [Concomitant]
     Active Substance: HYDROCORTISONE SODIUM SUCCINATE
     Route: 065
  13. AVASTIN [Suspect]
     Active Substance: BEVACIZUMAB
     Indication: MALIGNANT RESPIRATORY TRACT NEOPLASM
     Dosage: 02/DEC/2005, 23/DEC/2005, 13/JAN/2006, 09/FEB/2006 23/FEB/2006 AND 02/MAR/2006.
     Route: 042
     Dates: start: 20051111
  14. GEMZAR [Concomitant]
     Active Substance: GEMCITABINE HYDROCHLORIDE
     Route: 065
  15. NEURONTIN [Concomitant]
     Active Substance: GABAPENTIN
     Route: 065
  16. FLUCONAZOLE. [Concomitant]
     Active Substance: FLUCONAZOLE
  17. INDOCIN [Concomitant]
     Active Substance: INDOMETHACIN\INDOMETHACIN SODIUM
  18. TAXOL [Concomitant]
     Active Substance: PACLITAXEL
  19. ARICEPT [Concomitant]
     Active Substance: DONEPEZIL HYDROCHLORIDE
  20. OXYCONTIN [Concomitant]
     Active Substance: OXYCODONE HYDROCHLORIDE
     Route: 065

REACTIONS (29)
  - Oedema peripheral [Unknown]
  - Nausea [Unknown]
  - Fatigue [Unknown]
  - Nasopharyngitis [Unknown]
  - Vomiting [Unknown]
  - Weight decreased [Unknown]
  - Thrombocytopenia [Unknown]
  - Anaemia [Unknown]
  - Cough [Unknown]
  - Pain [Unknown]
  - Cachexia [Unknown]
  - Off label use [Unknown]
  - Pyrexia [Unknown]
  - Retching [Unknown]
  - Rash [Unknown]
  - Oral candidiasis [Unknown]
  - Dyspnoea [Unknown]
  - Swelling face [Unknown]
  - Eye swelling [Unknown]
  - Local swelling [Unknown]
  - Chest pain [Unknown]
  - Death [Fatal]
  - Chest discomfort [Unknown]
  - Ocular icterus [Unknown]
  - Bone marrow failure [Unknown]
  - Dysphonia [Unknown]
  - Disease progression [Unknown]
  - Epistaxis [Unknown]
  - Breath sounds abnormal [Unknown]

NARRATIVE: CASE EVENT DATE: 20060507
